FAERS Safety Report 4386995-3 (Version None)
Quarter: 2004Q2

REPORT INFORMATION
  Report Type: 
  Country: None (occurrence: None)
  Receive Date: 20040625
  Receipt Date: 20040312
  Transmission Date: 20050107
  Serious: Yes (Life-Threatening, Hospitalization)
  Sender: FDA-Public Use
  Company Number: RENA-10941

PATIENT
  Age: 69 Year
  Sex: Female
  Weight: 41 kg

DRUGS (12)
  1. RENAGEL [Suspect]
     Indication: HYPERPHOSPHATAEMIA
     Dosage: 1.5 G TID PO
     Route: 048
     Dates: start: 20030710, end: 20040214
  2. TELMISARTAN [Concomitant]
  3. NIFEDIPINE [Concomitant]
  4. RISEDRONATE SODIUM [Concomitant]
  5. MAXACALCITOL [Concomitant]
  6. SODIUM PICOSULFATE [Concomitant]
  7. MAGNESIUM OXIDE [Concomitant]
  8. SENNA LEAF [Concomitant]
  9. SENNA FRUIT [Concomitant]
  10. RUBIA ROOT TINCTURE [Concomitant]
  11. ACHILLEA [Concomitant]
  12. TARAXACUM [Concomitant]

REACTIONS (6)
  - CHEST PAIN [None]
  - CONSTIPATION [None]
  - ILEUS [None]
  - LARGE INTESTINE PERFORATION [None]
  - POSTOPERATIVE INFECTION [None]
  - SEPSIS [None]
